FAERS Safety Report 23617267 (Version 1)
Quarter: 2024Q1

REPORT INFORMATION
  Report Type: Spontaneous
  Country: US (occurrence: None)
  Receive Date: 20240311
  Receipt Date: 20240311
  Transmission Date: 20240409
  Serious: Yes (Hospitalization)
  Sender: FDA-Public Use
  Company Number: None

PATIENT
  Sex: Female

DRUGS (2)
  1. TACROLIMUS [Suspect]
     Active Substance: TACROLIMUS
     Indication: Lung transplant
     Dosage: ORAL?TAKE 3 CAPSULES BY MOUTH EVERY MORNING AND 2 CAPSULES EVERY NIGHT?
     Route: 048
     Dates: start: 202211
  2. AZATHIOPRINE [Concomitant]
     Active Substance: AZATHIOPRINE

REACTIONS (5)
  - Retching [None]
  - COVID-19 [None]
  - Renal disorder [None]
  - Weight decreased [None]
  - Renal impairment [None]
